FAERS Safety Report 13458357 (Version 1)
Quarter: 2017Q2

REPORT INFORMATION
  Report Type: Spontaneous
  Country: IN (occurrence: IN)
  Receive Date: 20170419
  Receipt Date: 20170419
  Transmission Date: 20170830
  Serious: Yes (Life-Threatening, Other)
  Sender: FDA-Public Use
  Company Number: IN-ACCORD-050552

PATIENT
  Age: 29 Year
  Sex: Male

DRUGS (3)
  1. ETOPOSIDE. [Suspect]
     Active Substance: ETOPOSIDE
     Indication: NEOPLASM
     Dosage: NEO ADJUVANT CHEMOTHERAPY
  2. IFOSFAMIDE. [Suspect]
     Active Substance: IFOSFAMIDE
     Indication: NEOPLASM
     Dosage: NEO ADJUVANT CHEMOTHERAPY
  3. CARBOPLATIN. [Suspect]
     Active Substance: CARBOPLATIN
     Indication: NEOPLASM
     Dosage: NEO ADJUVANT CHEMOTHERAPY

REACTIONS (2)
  - Drug ineffective [Unknown]
  - Disease progression [Unknown]
